FAERS Safety Report 11371027 (Version 1)
Quarter: 2015Q3

REPORT INFORMATION
  Report Type: Spontaneous
  Country: CH (occurrence: CH)
  Receive Date: 20150812
  Receipt Date: 20150812
  Transmission Date: 20151125
  Serious: Yes (Other)
  Sender: FDA-Public Use
  Company Number: CH-BAYER-2015-397940

PATIENT
  Age: 61 Year
  Sex: Male
  Weight: 77 kg

DRUGS (2)
  1. ESOMEPRAZOLE W/NAPROXEN [Suspect]
     Active Substance: ESOMEPRAZOLE MAGNESIUM\NAPROXEN
     Indication: ARTHROPATHY
     Dosage: 500 MG, BID
     Route: 048
     Dates: start: 201505, end: 20150710
  2. ASPIRIN CARDIO [Suspect]
     Active Substance: ASPIRIN
     Dosage: 100 MG, QD

REACTIONS (2)
  - Eosinophilic pneumonia [Recovering/Resolving]
  - Dyspnoea exertional [Recovering/Resolving]

NARRATIVE: CASE EVENT DATE: 201506
